FAERS Safety Report 14432748 (Version 1)
Quarter: 2018Q1

REPORT INFORMATION
  Report Type: Spontaneous
  Country: US (occurrence: US)
  Receive Date: 20180124
  Receipt Date: 20180124
  Transmission Date: 20180509
  Serious: Yes (Death)
  Sender: FDA-Public Use
  Company Number: US-BAYER-2018-010210

PATIENT
  Sex: Female

DRUGS (1)
  1. MILK OF MAGNESIA ORIGINAL [Suspect]
     Active Substance: MAGNESIUM HYDROXIDE
     Indication: HAEMORRHOIDS
     Dosage: USED MORE THAN THE RECOMMENDED DOSE
     Route: 048

REACTIONS (5)
  - Incorrect dose administered [Unknown]
  - Death [Fatal]
  - Incorrect drug administration duration [Unknown]
  - Product prescribing issue [Unknown]
  - Product use in unapproved indication [None]
